FAERS Safety Report 6735951-6 (Version None)
Quarter: 2010Q2

REPORT INFORMATION
  Report Type: 
  Country: None (occurrence: None)
  Receive Date: 20100521
  Receipt Date: 20100514
  Transmission Date: 20101027
  Serious: Yes (Life-Threatening)
  Sender: FDA-Public Use
  Company Number: B0652899A

PATIENT
  Sex: Female

DRUGS (6)
  1. AUGMENTIN '125' [Suspect]
     Indication: BRONCHITIS
     Dosage: 1UNIT SINGLE DOSE
     Route: 048
     Dates: start: 20100101, end: 20100101
  2. CORDARONE [Concomitant]
     Route: 065
  3. PREVISCAN [Concomitant]
     Route: 065
  4. TAREG [Concomitant]
     Route: 065
  5. ZANIDIP [Concomitant]
     Route: 065
  6. SECTRAL [Concomitant]
     Route: 065

REACTIONS (5)
  - ABDOMINAL PAIN [None]
  - ANAPHYLACTIC SHOCK [None]
  - DYSPNOEA [None]
  - GENERALISED ERYTHEMA [None]
  - HYPOTENSION [None]
